FAERS Safety Report 22055119 (Version 1)
Quarter: 2023Q1

REPORT INFORMATION
  Report Type: Report from Study
  Country: BR (occurrence: BR)
  Receive Date: 20230302
  Receipt Date: 20230302
  Transmission Date: 20230417
  Serious: Yes (Other)
  Sender: FDA-Public Use
  Company Number: BR-JNJFOC-20230261296

PATIENT

DRUGS (1)
  1. REMICADE [Suspect]
     Active Substance: INFLIXIMAB
     Indication: Crohn^s disease
     Dosage: FOR 10 YEARS
     Route: 041

REACTIONS (2)
  - Tuberculosis [Recovered/Resolved]
  - Infected bite [Recovering/Resolving]

NARRATIVE: CASE EVENT DATE: 20100501
